FAERS Safety Report 9995571 (Version 1)
Quarter: 2014Q1

REPORT INFORMATION
  Report Type: Spontaneous
  Country: US (occurrence: None)
  Receive Date: 20140306
  Receipt Date: 20140306
  Transmission Date: 20141002
  Serious: Yes (Hospitalization)
  Sender: FDA-Public Use
  Company Number: UTC-045244

PATIENT
  Age: 78 Year
  Sex: Female

DRUGS (8)
  1. TYVASO (6 MICROGRAM, AEROSOL FOR INHALATION) (TREPROSTINIL SODIUM) [Suspect]
     Indication: PULMONARY ARTERIAL HYPERTENSION
     Dosage: 216 MCG (54 MCG,4 IN 1 D),INHALATION?
     Route: 055
     Dates: start: 201312, end: 201402
  2. ADCIRCA (TADALAFIL)(UNKNOWN) [Concomitant]
  3. FOSAMAX(ALENDRONATE SODIUM)(UNKNOWN) [Concomitant]
  4. SYNTHROID(LEVOTHYROXINE SODIUM) (UNKNOWN) [Concomitant]
  5. BYSTOLIC(NEBIVOLOL HYDROCHLORIDE)(UNKNOWN) [Concomitant]
  6. TEMAZEPAM(UNKNOWN) [Concomitant]
  7. TRIAMCINOLONE(UNKNOWN) [Concomitant]
  8. DOXYCYCLINE(UNKNOWN) [Concomitant]

REACTIONS (2)
  - Diarrhoea [None]
  - Pulmonary congestion [None]
